FAERS Safety Report 9122638 (Version 1)
Quarter: 2013Q1

REPORT INFORMATION
  Report Type: Spontaneous
  Country: US (occurrence: None)
  Receive Date: 20130131
  Receipt Date: 20130131
  Transmission Date: 20140127
  Serious: Yes (Hospitalization)
  Sender: FDA-Public Use
  Company Number: JPI-P-029310

PATIENT
  Sex: Female

DRUGS (2)
  1. LUVOX CR (CAPSULES) (FLUVOXAMINE MALEATE) [Suspect]
     Indication: PRODUCT USED FOR UNKNOWN INDICATION
     Route: 048
  2. LUVOX CR (CAPSULES) (FLUVOXAMINE MALEATE) [Suspect]
     Route: 048

REACTIONS (2)
  - Abdominal pain upper [None]
  - Appendicitis [None]
